FAERS Safety Report 8364188-2 (Version None)
Quarter: 2012Q2

REPORT INFORMATION
  Report Type: 
  Country: None (occurrence: None)
  Receive Date: 20120516
  Receipt Date: 20120323
  Transmission Date: 20120825
  Serious: Yes (Hospitalization)
  Sender: FDA-Public Use
  Company Number: US-ALEXION-A201200502

PATIENT
  Sex: Female
  Weight: 45.8 kg

DRUGS (8)
  1. SOLIRIS [Suspect]
     Dosage: 900 UNK, Q2W
     Route: 042
     Dates: start: 20080101
  2. FUROSEMIDE [Concomitant]
  3. WARFARIN SODIUM [Concomitant]
  4. SOLIRIS [Suspect]
     Indication: PAROXYSMAL NOCTURNAL HAEMOGLOBINURIA
     Dosage: 600 MG, QW
     Route: 042
     Dates: start: 20080901
  5. SPIRONOLACTONE [Concomitant]
  6. ALDACTONE [Concomitant]
  7. FOLIC ACID [Concomitant]
  8. FERROUS SULFATE TAB [Concomitant]

REACTIONS (4)
  - PLATELET COUNT DECREASED [None]
  - ASCITES [None]
  - CONDITION AGGRAVATED [None]
  - ANAEMIA [None]
